FAERS Safety Report 21551188 (Version 1)
Quarter: 2022Q4

REPORT INFORMATION
  Report Type: Spontaneous
  Country: US (occurrence: None)
  Receive Date: 20221103
  Receipt Date: 20221103
  Transmission Date: 20230112
  Serious: Yes (Hospitalization)
  Sender: FDA-Public Use
  Company Number: None

PATIENT
  Sex: Female

DRUGS (1)
  1. TACROLIMUS [Suspect]
     Active Substance: TACROLIMUS
     Indication: Liver transplant
     Dosage: 1MG TWICE A DAY BY MOUTH?
     Route: 048
     Dates: start: 20070707

REACTIONS (4)
  - Infection [None]
  - Abdominal pain [None]
  - Pyrexia [None]
  - Impaired gastric emptying [None]
